FAERS Safety Report 10816220 (Version 3)
Quarter: 2016Q1

REPORT INFORMATION
  Report Type: Report from Study
  Country: US (occurrence: US)
  Receive Date: 20150218
  Receipt Date: 20160201
  Transmission Date: 20160525
  Serious: No
  Sender: FDA-Public Use
  Company Number: US-ABBVIE-14K-163-1283998-00

PATIENT
  Sex: Female

DRUGS (1)
  1. HUMIRA [Suspect]
     Active Substance: ADALIMUMAB
     Indication: CROHN^S DISEASE
     Route: 065
     Dates: start: 20140711

REACTIONS (8)
  - Malaise [Recovered/Resolved]
  - Feeling abnormal [Not Recovered/Not Resolved]
  - Frequent bowel movements [Recovering/Resolving]
  - Drug ineffective [Recovered/Resolved]
  - Nausea [Recovered/Resolved]
  - Weight increased [Unknown]
  - Diarrhoea [Not Recovered/Not Resolved]
  - Dehydration [Unknown]
